FAERS Safety Report 21654735 (Version 1)
Quarter: 2022Q4

REPORT INFORMATION
  Report Type: Report from Study
  Country: US (occurrence: US)
  Receive Date: 20221129
  Receipt Date: 20221129
  Transmission Date: 20230113
  Serious: No
  Sender: FDA-Public Use
  Company Number: US-ABBVIE-4170181

PATIENT
  Sex: Female

DRUGS (3)
  1. HUMIRA [Suspect]
     Active Substance: ADALIMUMAB
     Indication: Product used for unknown indication
     Dosage: CITRATE FREE.
     Route: 058
  2. Moderna Covid vaccine received [Concomitant]
     Indication: COVID-19 immunisation
     Dosage: ONCE, 1ST DOSE
     Dates: start: 202104
  3. Moderna Covid vaccine received [Concomitant]
     Indication: COVID-19 immunisation
     Dosage: 2ND DOSE, ONCE
     Dates: start: 202105

REACTIONS (1)
  - Maternal exposure during pregnancy [Unknown]
